FAERS Safety Report 4962284-0 (Version None)
Quarter: 2006Q2

REPORT INFORMATION
  Report Type: 
  Country: None (occurrence: None)
  Receive Date: 20060404
  Receipt Date: 20050309
  Transmission Date: 20061013
  Serious: No
  Sender: FDA-Public Use
  Company Number: US-BRISTOL-MYERS SQUIBB COMPANY-12891651

PATIENT
  Age: 78 Year
  Sex: Female
  Weight: 58 kg

DRUGS (4)
  1. HYDREA [Suspect]
     Indication: THROMBOCYTOPENIA
     Dates: start: 20050215, end: 20050224
  2. SYNTHROID [Concomitant]
  3. ASPIRIN [Concomitant]
  4. VITAMINS [Concomitant]

REACTIONS (9)
  - ABDOMINAL PAIN UPPER [None]
  - ARTHRALGIA [None]
  - CHILLS [None]
  - DIZZINESS [None]
  - FLUSHING [None]
  - HEADACHE [None]
  - INSOMNIA [None]
  - SOMNOLENCE [None]
  - TOOTH FRACTURE [None]
